FAERS Safety Report 9253343 (Version 1)
Quarter: 2013Q2

REPORT INFORMATION
  Report Type: Report from Study
  Country: DE (occurrence: DE)
  Receive Date: 20130424
  Receipt Date: 20130424
  Transmission Date: 20140414
  Serious: Yes (Other)
  Sender: FDA-Public Use
  Company Number: DE-BRISTOL-MYERS SQUIBB COMPANY-18803742

PATIENT
  Age: 60 Year
  Sex: Female
  Weight: 48 kg

DRUGS (5)
  1. CETUXIMAB [Suspect]
     Indication: HEAD AND NECK CANCER
     Dosage: LAST DOSE ON 27SEP2011
     Route: 042
     Dates: start: 20110809
  2. CISPLATIN [Suspect]
     Indication: HEAD AND NECK CANCER
     Dosage: LAST DOSE ON 18JUL2011?OVER 1 HR
     Route: 042
     Dates: start: 20110606
  3. DOCETAXEL [Suspect]
     Indication: HEAD AND NECK CANCER
     Dosage: LAST DOSE ON 18JUL2011?OVER 1 HR
     Route: 042
     Dates: start: 20110606
  4. FLUOROURACIL [Suspect]
     Indication: HEAD AND NECK CANCER
     Dosage: LAST DOSE ON 18JUL2011
     Route: 042
     Dates: start: 20110606
  5. METAMIZOL [Concomitant]
     Indication: PAIN
     Route: 048

REACTIONS (1)
  - Osteoradionecrosis [Not Recovered/Not Resolved]
